FAERS Safety Report 24394809 (Version 1)
Quarter: 2024Q4

REPORT INFORMATION
  Report Type: Spontaneous
  Country: CA (occurrence: CA)
  Receive Date: 20241004
  Receipt Date: 20241004
  Transmission Date: 20250115
  Serious: Yes (Hospitalization)
  Sender: ACCORD
  Company Number: None

PATIENT
  Age: 86 Year
  Sex: Male
  Weight: 90 kg

DRUGS (10)
  1. APIXABAN [Suspect]
     Active Substance: APIXABAN
     Indication: Atrial fibrillation
     Dosage: 2 EVERY 1 DAYS
     Route: 048
  2. CHOLECALCIFEROL [Concomitant]
     Active Substance: CHOLECALCIFEROL
  3. PERINDOPRIL [Concomitant]
     Active Substance: PERINDOPRIL
     Dosage: 2MG TAB
  4. FUROSEMIDE [Concomitant]
     Active Substance: FUROSEMIDE
  5. LUMIGAN [Concomitant]
     Active Substance: BIMATOPROST
     Dosage: OPHTHALMIC
  6. NORVASC [Concomitant]
     Active Substance: AMLODIPINE BESYLATE
  7. DENOSUMAB [Concomitant]
     Active Substance: DENOSUMAB
     Route: 058
  8. PROZAC [Concomitant]
     Active Substance: FLUOXETINE HYDROCHLORIDE
     Dosage: PROZAC CAP 20MG
  9. BRINZOLAMIDE, BRIMONIDINE [Concomitant]
  10. VENTOLIN HFA [Concomitant]
     Active Substance: ALBUTEROL SULFATE

REACTIONS (1)
  - Diverticulum intestinal haemorrhagic [Recovered/Resolved]
